FAERS Safety Report 9316478 (Version 4)
Quarter: 2013Q4

REPORT INFORMATION
  Report Type: Spontaneous
  Country: US (occurrence: US)
  Receive Date: 20130530
  Receipt Date: 20131121
  Transmission Date: 20140711
  Serious: Yes (Hospitalization)
  Sender: FDA-Public Use
  Company Number: US-B.I. PHARMACEUTICALS,INC./RIDGEFIELD-2013-BI-14433BP

PATIENT
  Age: 85 Year
  Sex: Female
  Weight: 50.8 kg

DRUGS (5)
  1. PRADAXA [Suspect]
     Indication: ANTICOAGULANT THERAPY
     Dosage: 75 MG
     Route: 048
     Dates: start: 20110628, end: 20110809
  2. AMLODIPINE [Concomitant]
  3. LISINOPRIL [Concomitant]
     Dosage: 5 MG
  4. METOPROLOL [Concomitant]
     Dosage: 50 MG
  5. PANTOPRAZOLE [Concomitant]

REACTIONS (1)
  - Cerebral haemorrhage [Unknown]
